FAERS Safety Report 25858410 (Version 1)
Quarter: 2025Q3

REPORT INFORMATION
  Report Type: Spontaneous
  Country: US (occurrence: US)
  Receive Date: 20250929
  Receipt Date: 20250929
  Transmission Date: 20251020
  Serious: Yes (Death, Hospitalization)
  Sender: MYLAN
  Company Number: US-MYLANLABS-2025M1083054

PATIENT
  Age: 6 Decade
  Sex: Male

DRUGS (36)
  1. AMLODIPINE [Interacting]
     Active Substance: AMLODIPINE BESYLATE
     Indication: Hypertension
  2. AMLODIPINE [Interacting]
     Active Substance: AMLODIPINE BESYLATE
     Route: 065
  3. AMLODIPINE [Interacting]
     Active Substance: AMLODIPINE BESYLATE
     Route: 065
  4. AMLODIPINE [Interacting]
     Active Substance: AMLODIPINE BESYLATE
  5. METOPROLOL [Interacting]
     Active Substance: METOPROLOL
     Indication: Hypertension
  6. METOPROLOL [Interacting]
     Active Substance: METOPROLOL
     Route: 065
  7. METOPROLOL [Interacting]
     Active Substance: METOPROLOL
     Route: 065
  8. METOPROLOL [Interacting]
     Active Substance: METOPROLOL
  9. METFORMIN [Interacting]
     Active Substance: METFORMIN HYDROCHLORIDE
     Indication: Type 2 diabetes mellitus
  10. METFORMIN [Interacting]
     Active Substance: METFORMIN HYDROCHLORIDE
     Route: 065
  11. METFORMIN [Interacting]
     Active Substance: METFORMIN HYDROCHLORIDE
     Route: 065
  12. METFORMIN [Interacting]
     Active Substance: METFORMIN HYDROCHLORIDE
  13. ALLOPURINOL [Interacting]
     Active Substance: ALLOPURINOL
     Indication: Gout
     Dosage: 50 MILLIGRAM, QD
  14. ALLOPURINOL [Interacting]
     Active Substance: ALLOPURINOL
     Dosage: 50 MILLIGRAM, QD
     Route: 065
  15. ALLOPURINOL [Interacting]
     Active Substance: ALLOPURINOL
     Dosage: 50 MILLIGRAM, QD
     Route: 065
  16. ALLOPURINOL [Interacting]
     Active Substance: ALLOPURINOL
     Dosage: 50 MILLIGRAM, QD
  17. COLCHICINE [Interacting]
     Active Substance: COLCHICINE
     Indication: Gout
     Dosage: 0.6 MILLIGRAM, QD
  18. COLCHICINE [Interacting]
     Active Substance: COLCHICINE
     Dosage: 0.6 MILLIGRAM, QD
     Route: 065
  19. COLCHICINE [Interacting]
     Active Substance: COLCHICINE
     Dosage: 0.6 MILLIGRAM, QD
     Route: 065
  20. COLCHICINE [Interacting]
     Active Substance: COLCHICINE
     Dosage: 0.6 MILLIGRAM, QD
  21. HYDROCHLOROTHIAZIDE [Interacting]
     Active Substance: HYDROCHLOROTHIAZIDE
     Indication: Chronic kidney disease
  22. HYDROCHLOROTHIAZIDE [Interacting]
     Active Substance: HYDROCHLOROTHIAZIDE
     Route: 065
  23. HYDROCHLOROTHIAZIDE [Interacting]
     Active Substance: HYDROCHLOROTHIAZIDE
     Route: 065
  24. HYDROCHLOROTHIAZIDE [Interacting]
     Active Substance: HYDROCHLOROTHIAZIDE
  25. BUPROPION HYDROCHLORIDE [Interacting]
     Active Substance: BUPROPION HYDROCHLORIDE
     Indication: Depression
  26. BUPROPION HYDROCHLORIDE [Interacting]
     Active Substance: BUPROPION HYDROCHLORIDE
     Route: 065
  27. BUPROPION HYDROCHLORIDE [Interacting]
     Active Substance: BUPROPION HYDROCHLORIDE
     Route: 065
  28. BUPROPION HYDROCHLORIDE [Interacting]
     Active Substance: BUPROPION HYDROCHLORIDE
  29. ALBUTEROL [Concomitant]
     Active Substance: ALBUTEROL
     Indication: Asthma
  30. ALBUTEROL [Concomitant]
     Active Substance: ALBUTEROL
     Route: 065
  31. ALBUTEROL [Concomitant]
     Active Substance: ALBUTEROL
     Route: 065
  32. ALBUTEROL [Concomitant]
     Active Substance: ALBUTEROL
  33. AZITHROMYCIN [Concomitant]
     Active Substance: AZITHROMYCIN
     Indication: Antibiotic therapy
  34. AZITHROMYCIN [Concomitant]
     Active Substance: AZITHROMYCIN
     Route: 065
  35. AZITHROMYCIN [Concomitant]
     Active Substance: AZITHROMYCIN
     Route: 065
  36. AZITHROMYCIN [Concomitant]
     Active Substance: AZITHROMYCIN

REACTIONS (5)
  - Hepatotoxicity [Fatal]
  - Acute hepatic failure [Fatal]
  - Drug interaction [Fatal]
  - Multiple organ dysfunction syndrome [Fatal]
  - Metabolic acidosis [Fatal]
